FAERS Safety Report 6505630-9 (Version None)
Quarter: 2009Q4

REPORT INFORMATION
  Report Type: 
  Country: None (occurrence: None)
  Receive Date: 20091218
  Receipt Date: 20091208
  Transmission Date: 20100525
  Serious: Yes (Death)
  Sender: FDA-Public Use
  Company Number: GXKR2009US13241

PATIENT
  Age: 66 Year
  Sex: Male

DRUGS (6)
  1. DOXORUBICIN (NGX) [Suspect]
     Indication: ANGIOCENTRIC LYMPHOMA
     Route: 065
  2. VINCRISTINE (NGX) [Suspect]
     Indication: ANGIOCENTRIC LYMPHOMA
     Route: 065
  3. PREDNISOLONE [Suspect]
     Indication: ANGIOCENTRIC LYMPHOMA
     Route: 065
  4. CYCLOPHOSPHAMIDE [Suspect]
     Indication: ANGIOCENTRIC LYMPHOMA
     Route: 065
  5. RITUXIMAB [Concomitant]
     Indication: ANGIOCENTRIC LYMPHOMA
     Route: 065
  6. STEROIDS NOS [Concomitant]
     Indication: ANGIOCENTRIC LYMPHOMA
     Dosage: HIGH DOSE
     Route: 065

REACTIONS (3)
  - PANCYTOPENIA [None]
  - RENAL FAILURE ACUTE [None]
  - SEPTIC SHOCK [None]
